FAERS Safety Report 25483208 (Version 1)
Quarter: 2025Q2

REPORT INFORMATION
  Report Type: Spontaneous
  Country: US (occurrence: US)
  Receive Date: 20250626
  Receipt Date: 20250626
  Transmission Date: 20250717
  Serious: Yes (Other)
  Sender: CHATTEM
  Company Number: US-OPELLA-2025OHG019219

PATIENT

DRUGS (1)
  1. ICY HOT [Suspect]
     Active Substance: LIDOCAINE\MENTHOL
     Indication: Product used for unknown indication
     Route: 065

REACTIONS (1)
  - Burns third degree [Unknown]
